FAERS Safety Report 21624289 (Version 1)
Quarter: 2022Q4

REPORT INFORMATION
  Report Type: Spontaneous
  Country: GB (occurrence: GB)
  Receive Date: 20221121
  Receipt Date: 20221121
  Transmission Date: 20230113
  Serious: Yes (Disabling, Other)
  Sender: FDA-Public Use
  Company Number: GB-MHRA-MED-202211191225229070-BDSPJ

PATIENT
  Sex: Female
  Weight: 76 kg

DRUGS (1)
  1. PRAMIPEXOLE [Suspect]
     Active Substance: PRAMIPEXOLE
     Indication: Product used for unknown indication

REACTIONS (1)
  - Rebound effect [Recovering/Resolving]

NARRATIVE: CASE EVENT DATE: 20210301
